FAERS Safety Report 23034148 (Version 1)
Quarter: 2023Q4

REPORT INFORMATION
  Report Type: Spontaneous
  Country: US (occurrence: US)
  Receive Date: 20231005
  Receipt Date: 20231005
  Transmission Date: 20240110
  Serious: No
  Sender: FDA-Public Use
  Company Number: US-BIOVITRUM-2023-US-015384

PATIENT
  Sex: Female

DRUGS (1)
  1. KINERET [Suspect]
     Active Substance: ANAKINRA
     Indication: Autoimmune disorder

REACTIONS (4)
  - Pruritus [Unknown]
  - Nervousness [Unknown]
  - Feeling jittery [Unknown]
  - Intentional product misuse [Unknown]
